FAERS Safety Report 23278699 (Version 1)
Quarter: 2023Q4

REPORT INFORMATION
  Report Type: Spontaneous
  Country: US (occurrence: US)
  Receive Date: 20231208
  Receipt Date: 20231208
  Transmission Date: 20240109
  Serious: No
  Sender: FDA-Public Use
  Company Number: US-SANDOZ-SDZ2023US064331

PATIENT

DRUGS (3)
  1. FOCALIN XR [Suspect]
     Active Substance: DEXMETHYLPHENIDATE HYDROCHLORIDE
     Indication: Aggression
     Dosage: 10 MG
     Route: 065
     Dates: start: 20231204, end: 20231204
  2. FOCALIN XR [Suspect]
     Active Substance: DEXMETHYLPHENIDATE HYDROCHLORIDE
     Indication: Depressed mood
  3. FOCALIN XR [Suspect]
     Active Substance: DEXMETHYLPHENIDATE HYDROCHLORIDE
     Indication: Irritability

REACTIONS (5)
  - Product dose omission issue [Unknown]
  - Aggression [Unknown]
  - Screaming [Unknown]
  - Depressed mood [Unknown]
  - Irritability [Unknown]
